FAERS Safety Report 4504288-8 (Version None)
Quarter: 2004Q4

REPORT INFORMATION
  Report Type: 
  Country: None (occurrence: None)
  Receive Date: 20041118
  Receipt Date: 20041115
  Transmission Date: 20050328
  Serious: Yes (Hospitalization)
  Sender: FDA-Public Use
  Company Number: FR-BRISTOL-MYERS SQUIBB COMPANY-12766796

PATIENT
  Age: 42 Year
  Sex: Female

DRUGS (1)
  1. HYDREA [Suspect]
     Indication: THROMBOCYTHAEMIA
     Dosage: CAPSULES
     Route: 048

REACTIONS (2)
  - INTENTIONAL OVERDOSE [None]
  - SUICIDE ATTEMPT [None]
